FAERS Safety Report 7408332-X (Version None)
Quarter: 2011Q2

REPORT INFORMATION
  Report Type: 
  Country: None (occurrence: None)
  Receive Date: 20110401
  Receipt Date: 20110325
  Transmission Date: 20111010
  Serious: Yes (Hospitalization)
  Sender: FDA-Public Use
  Company Number: 2011SP013797

PATIENT
  Age: 10 Year
  Sex: Male

DRUGS (1)
  1. SAPHRIS [Suspect]
     Indication: PRODUCT USED FOR UNKNOWN INDICATION
     Dates: start: 20101201

REACTIONS (3)
  - FALL [None]
  - LACERATION [None]
  - HEAD INJURY [None]
